FAERS Safety Report 7645349-4 (Version None)
Quarter: 2011Q3

REPORT INFORMATION
  Report Type: 
  Country: None (occurrence: None)
  Receive Date: 20110729
  Receipt Date: 20110727
  Transmission Date: 20111222
  Serious: Yes (Hospitalization)
  Sender: FDA-Public Use
  Company Number: US-BRISTOL-MYERS SQUIBB COMPANY-15913395

PATIENT
  Age: 73 Year
  Sex: Female

DRUGS (3)
  1. INSPRA [Concomitant]
  2. COUMADIN [Suspect]
     Indication: HEART RATE IRREGULAR
     Dosage: ALSO TAKEN 2 MG
     Route: 048
  3. COUMADIN [Suspect]
     Indication: ATRIAL FIBRILLATION
     Dosage: ALSO TAKEN 2 MG
     Route: 048

REACTIONS (7)
  - INTERNATIONAL NORMALISED RATIO DECREASED [None]
  - STOMATITIS [None]
  - ORAL PAIN [None]
  - DIVERTICULITIS [None]
  - SWOLLEN TONGUE [None]
  - DYSGEUSIA [None]
  - PARAESTHESIA [None]
